FAERS Safety Report 15911032 (Version 1)
Quarter: 2019Q1

REPORT INFORMATION
  Report Type: Spontaneous
  Country: US (occurrence: US)
  Receive Date: 20190204
  Receipt Date: 20190204
  Transmission Date: 20190417
  Serious: Yes (Other)
  Sender: FDA-Public Use
  Company Number: US-ABBVIE-18K-163-2373338-00

PATIENT
  Sex: Female

DRUGS (1)
  1. HUMIRA [Suspect]
     Active Substance: ADALIMUMAB
     Indication: HIDRADENITIS
     Route: 058
     Dates: start: 201805

REACTIONS (8)
  - Dry eye [Unknown]
  - Myocardial infarction [Unknown]
  - Fatigue [Unknown]
  - Mood altered [Unknown]
  - Wound [Recovered/Resolved]
  - Nodule [Unknown]
  - Sleep apnoea syndrome [Unknown]
  - Injection site pain [Unknown]

NARRATIVE: CASE EVENT DATE: 2018
